FAERS Safety Report 5532253-0 (Version None)
Quarter: 2007Q4

REPORT INFORMATION
  Report Type: 
  Country: None (occurrence: None)
  Receive Date: 20071203
  Receipt Date: 20071123
  Transmission Date: 20080405
  Serious: Yes (Death, Hospitalization)
  Sender: FDA-Public Use
  Company Number: FR-SANOFI-SYNTHELABO-A02200702613

PATIENT
  Age: 69 Year
  Sex: Male

DRUGS (4)
  1. GEMZAR [Suspect]
     Indication: PANCREATIC CARCINOMA
     Route: 042
     Dates: start: 20070726, end: 20070726
  2. ELOXATIN [Suspect]
     Indication: PANCREATIC CARCINOMA
     Route: 042
     Dates: start: 20070726, end: 20070726
  3. SOLU-MEDROL [Concomitant]
     Route: 042
     Dates: start: 20070726, end: 20070726
  4. ONDANSETRON [Concomitant]
     Route: 042
     Dates: start: 20070726, end: 20070726

REACTIONS (14)
  - ACUTE RESPIRATORY FAILURE [None]
  - BONE MARROW FAILURE [None]
  - COMA [None]
  - FUSOBACTERIUM INFECTION [None]
  - GINGIVAL BLEEDING [None]
  - HYPERCAPNIA [None]
  - MEGAKARYOCYTES INCREASED [None]
  - MELAENA [None]
  - PULMONARY HAEMORRHAGE [None]
  - PYREXIA [None]
  - SEPSIS [None]
  - STAPHYLOCOCCAL INFECTION [None]
  - THROMBOCYTOPENIA [None]
  - TONGUE HAEMATOMA [None]
